FAERS Safety Report 17826855 (Version 1)
Quarter: 2020Q2

REPORT INFORMATION
  Report Type: Spontaneous
  Country: ES (occurrence: ES)
  Receive Date: 20200526
  Receipt Date: 20200526
  Transmission Date: 20200714
  Serious: Yes (Hospitalization)
  Sender: FDA-Public Use
  Company Number: NVSC2020ES137050

PATIENT
  Age: 75 Year
  Sex: Female

DRUGS (3)
  1. LAMOTRIGINA SANDOZ 100 MG COMPRIMIDOS DISPERSABLES/MASTICABLES EFG [Suspect]
     Active Substance: LAMOTRIGINE
     Indication: PARTIAL SEIZURES
     Dosage: 25 MG, Q24H
     Route: 048
     Dates: start: 20200201, end: 20200211
  2. CEFTRIAXONA [Suspect]
     Active Substance: CEFTRIAXONE
     Indication: PNEUMONIA
     Dosage: 2 G, Q24H
     Route: 042
     Dates: start: 20200205, end: 20200206
  3. AMOXICILLIN. [Suspect]
     Active Substance: AMOXICILLIN
     Indication: PNEUMONIA
     Dosage: 1 G, Q8H
     Route: 042
     Dates: start: 20200201, end: 20200205

REACTIONS (2)
  - Drug reaction with eosinophilia and systemic symptoms [Recovered/Resolved]
  - Hepatitis [Recovered/Resolved]

NARRATIVE: CASE EVENT DATE: 20200207
